FAERS Safety Report 7743842-7 (Version None)
Quarter: 2011Q3

REPORT INFORMATION
  Report Type: 
  Country: None (occurrence: None)
  Receive Date: 20110912
  Receipt Date: 20110831
  Transmission Date: 20111222
  Serious: Yes (Other)
  Sender: FDA-Public Use
  Company Number: US-GLAXOSMITHKLINE-A0897063A

PATIENT
  Age: 53 Year
  Sex: Male
  Weight: 92.3 kg

DRUGS (4)
  1. AVANDIA [Suspect]
     Indication: TYPE 2 DIABETES MELLITUS
     Dosage: 4MG PER DAY
     Route: 048
     Dates: start: 20000615, end: 20080222
  2. GLUCOPHAGE [Concomitant]
  3. TRICOR [Concomitant]
  4. AMARYL [Concomitant]

REACTIONS (3)
  - ISCHAEMIC CARDIOMYOPATHY [None]
  - CONGESTIVE CARDIOMYOPATHY [None]
  - CARDIAC FAILURE CONGESTIVE [None]
